FAERS Safety Report 6249983-8 (Version None)
Quarter: 2009Q2

REPORT INFORMATION
  Report Type: 
  Country: None (occurrence: None)
  Receive Date: 20090629
  Receipt Date: 20090615
  Transmission Date: 20091009
  Serious: Yes (Death)
  Sender: FDA-Public Use
  Company Number: US-WATSON-2009-02572

PATIENT
  Sex: Male

DRUGS (9)
  1. POTASSIUM CHLORIDE EXTENDED-RELEASE (WATSON LABORATORIES) [Suspect]
     Indication: HYPOKALAEMIA
     Dosage: 1 TABLET, DAILY
     Route: 048
     Dates: start: 20060101
  2. ALBUTEROL [Suspect]
     Indication: DRUG USE FOR UNKNOWN INDICATION
     Dosage: 1 TABLET, BID
     Route: 048
  3. AZITHROMYCIN [Suspect]
     Indication: DRUG USE FOR UNKNOWN INDICATION
     Dosage: UNK
     Route: 065
  4. CYANOCOBALAMIN [Suspect]
     Indication: DRUG USE FOR UNKNOWN INDICATION
     Dosage: UNK
     Route: 065
  5. EPOETIN ALFA [Suspect]
     Indication: DRUG USE FOR UNKNOWN INDICATION
     Dosage: UNK
     Route: 065
  6. SIMVASTATIN [Suspect]
     Indication: DRUG USE FOR UNKNOWN INDICATION
     Dosage: 1 TABLET, DAILY
     Route: 048
  7. WARFARIN SODIUM [Suspect]
     Indication: DRUG USE FOR UNKNOWN INDICATION
     Dosage: 1 TABLET, DAILY
     Route: 048
  8. DIGOXIN [Suspect]
     Indication: DRUG USE FOR UNKNOWN INDICATION
     Dosage: 1 TABLET, DAILY
     Route: 048
  9. FUROSEMIDE INTENSOL [Suspect]
     Indication: DRUG USE FOR UNKNOWN INDICATION
     Dosage: 1 TABLET, DAILY
     Route: 048

REACTIONS (1)
  - SEPSIS [None]
